FAERS Safety Report 10064995 (Version 1)
Quarter: 2014Q2

REPORT INFORMATION
  Report Type: Spontaneous
  Country: US (occurrence: US)
  Receive Date: 20140408
  Receipt Date: 20140408
  Transmission Date: 20141212
  Serious: No
  Sender: FDA-Public Use
  Company Number: US-009507513-1404USA001081

PATIENT
  Age: 50 Year
  Sex: Male

DRUGS (3)
  1. PEGINTRON [Suspect]
     Indication: HEPATITIS C
     Dosage: 150 MICROGRAM (REDIPEN), QW
     Route: 058
     Dates: start: 201402
  2. REBETOL [Suspect]
     Dosage: 600 MG, BID
  3. SOVALDI [Concomitant]
     Dosage: 400 MG, QD

REACTIONS (10)
  - Tremor [Recovering/Resolving]
  - Nervousness [Recovering/Resolving]
  - Dyspepsia [Recovering/Resolving]
  - Chest pain [Recovering/Resolving]
  - Chills [Recovering/Resolving]
  - Asthenia [Recovering/Resolving]
  - Nausea [Recovering/Resolving]
  - Headache [Recovering/Resolving]
  - Drug dose omission [Unknown]
  - Product quality issue [Unknown]
